FAERS Safety Report 7400833-3 (Version None)
Quarter: 2011Q2

REPORT INFORMATION
  Report Type: 
  Country: None (occurrence: None)
  Receive Date: 20110407
  Receipt Date: 20110310
  Transmission Date: 20111010
  Serious: Yes (Hospitalization)
  Sender: FDA-Public Use
  Company Number: US-BAYER-201039300NA

PATIENT
  Sex: Female
  Weight: 62 kg

DRUGS (3)
  1. MIDRIN [Concomitant]
  2. UNCODEABLE ^UNCLASSIFIABLE^ [Concomitant]
  3. YAZ [Suspect]
     Indication: PRODUCT USED FOR UNKNOWN INDICATION
     Dosage: UNK UNK, QD
     Route: 048
     Dates: start: 20070901, end: 20081230

REACTIONS (2)
  - COSTOCHONDRITIS [None]
  - PORTAL VEIN THROMBOSIS [None]
